FAERS Safety Report 25366473 (Version 2)
Quarter: 2025Q2

REPORT INFORMATION
  Report Type: Spontaneous
  Country: US (occurrence: US)
  Receive Date: 20250528
  Receipt Date: 20250529
  Transmission Date: 20250717
  Serious: No
  Sender: ROCHE
  Company Number: US-ROCHE-10000289159

PATIENT
  Age: 75 Year
  Sex: Male
  Weight: 77.11 kg

DRUGS (2)
  1. XOLAIR PFS [Suspect]
     Active Substance: OMALIZUMAB
     Indication: Urticaria
     Dosage: LAST DOSE WAS 07-APR-2025
     Route: 058
     Dates: start: 202410
  2. FAMOTIDINE [Concomitant]
     Active Substance: FAMOTIDINE
     Route: 048

REACTIONS (3)
  - Product dose omission issue [Unknown]
  - Device defective [Unknown]
  - No adverse event [Unknown]

NARRATIVE: CASE EVENT DATE: 20250513
